FAERS Safety Report 25671542 (Version 1)
Quarter: 2025Q3

REPORT INFORMATION
  Report Type: Spontaneous
  Country: EU (occurrence: EU)
  Receive Date: 20250812
  Receipt Date: 20250812
  Transmission Date: 20251020
  Serious: Yes (Other)
  Sender: MYLAN
  Company Number: None

PATIENT
  Age: 42 Year
  Sex: Male
  Weight: 85 kg

DRUGS (1)
  1. ATORVASTATIN [Suspect]
     Active Substance: ATORVASTATIN
     Indication: Hypercholesterolaemia
     Dosage: 0.5 DOSAGE FORM, QD (ATORVASTATIN 10 MG, HALF A TABLET PER DAY)
     Dates: start: 20240202, end: 20240225

REACTIONS (4)
  - Rhabdomyolysis [Unknown]
  - Gynaecomastia [Unknown]
  - Breast pain [Unknown]
  - Blood creatine phosphokinase increased [Unknown]

NARRATIVE: CASE EVENT DATE: 20240202
